FAERS Safety Report 9891127 (Version 2)
Quarter: 2014Q2

REPORT INFORMATION
  Report Type: Spontaneous
  Country: IT (occurrence: IT)
  Receive Date: 20140212
  Receipt Date: 20140415
  Transmission Date: 20141212
  Serious: Yes (Hospitalization)
  Sender: FDA-Public Use
  Company Number: IT-ELI_LILLY_AND_COMPANY-IT201402000961

PATIENT
  Age: 27 Year
  Sex: Female

DRUGS (5)
  1. OLANZAPINE [Suspect]
     Indication: DRUG ABUSE
     Dosage: 11 G, SINGLE
     Route: 048
     Dates: start: 20140130, end: 20140130
  2. ENTUMIN [Suspect]
     Indication: DRUG ABUSE
     Dosage: 30 GTT, SINGLE
     Route: 048
     Dates: start: 20140130, end: 20140130
  3. XANAX [Concomitant]
     Dosage: 1 DF, UNKNOWN
  4. AMISULPRIDE [Concomitant]
     Dosage: 1 DF, UNKNOWN
  5. SERTRALIN                          /01011401/ [Concomitant]
     Dosage: 1 DF, UNKNOWN

REACTIONS (4)
  - Dyspnoea [Recovered/Resolved]
  - Asthenia [Recovered/Resolved]
  - Drug abuse [Unknown]
  - Intentional overdose [Recovered/Resolved]
